FAERS Safety Report 8616443-6 (Version None)
Quarter: 2012Q3

REPORT INFORMATION
  Report Type: 
  Country: None (occurrence: None)
  Receive Date: 20120823
  Receipt Date: 20120815
  Transmission Date: 20120928
  Serious: Yes (Other)
  Sender: FDA-Public Use
  Company Number: US-FRI-1000037865

PATIENT
  Age: 41 Year
  Sex: Female

DRUGS (4)
  1. RITALIN [Concomitant]
     Indication: NARCOLEPSY
     Dosage: 5 MG
  2. THYROID TAB [Suspect]
     Dosage: 45 MG
     Route: 048
     Dates: start: 20120701, end: 20120731
  3. PROVIGIL [Concomitant]
     Indication: NARCOLEPSY
     Dosage: 100-200 MG QD
  4. THYROID TAB [Suspect]
     Indication: HYPOTHYROIDISM
     Dosage: 30 MG
     Route: 048
     Dates: start: 20120101, end: 20120701

REACTIONS (2)
  - TOOTH INFECTION [None]
  - FATIGUE [None]
